FAERS Safety Report 9173785 (Version 1)
Quarter: 2013Q1

REPORT INFORMATION
  Report Type: Report from Study
  Country: US (occurrence: US)
  Receive Date: 20130320
  Receipt Date: 20130320
  Transmission Date: 20140127
  Serious: No
  Sender: FDA-Public Use
  Company Number: US-VERTEX PHARMACEUTICALS INC.-2013-003751

PATIENT
  Age: 49 Year
  Sex: Male
  Weight: 118 kg

DRUGS (6)
  1. VX-950 (TELAPREVIR) [Suspect]
     Indication: HEPATITIS C
     Dosage: 750 MG, TID
     Route: 048
     Dates: start: 2013
  2. RIBAPAK [Suspect]
     Indication: HEPATITIS C
     Dosage: 600 MG, BID
     Route: 048
     Dates: start: 2013
  3. PEGASYS [Suspect]
     Indication: HEPATITIS C
     Dosage: 180 ?G, QW
     Route: 058
     Dates: start: 2013
  4. PROPRANOLOL [Concomitant]
     Dosage: 10 MG, BID
  5. LEVOTHYROXINE [Concomitant]
     Dosage: UNK, QD
  6. INSULIN [Concomitant]
     Dosage: UNK, PRN

REACTIONS (3)
  - Haemorrhoids [Unknown]
  - Anal pruritus [Unknown]
  - Anorectal discomfort [Unknown]
